FAERS Safety Report 20333270 (Version 5)
Quarter: 2022Q1

REPORT INFORMATION
  Report Type: Spontaneous
  Country: JP (occurrence: JP)
  Receive Date: 20220113
  Receipt Date: 20220307
  Transmission Date: 20220424
  Serious: Yes (Death, Other)
  Sender: FDA-Public Use
  Company Number: JP-OTSUKA-2022_001391

PATIENT
  Age: 53 Year
  Sex: Female

DRUGS (16)
  1. ABILIFY MAINTENA [Suspect]
     Active Substance: ARIPIPRAZOLE
     Indication: Schizophrenia
     Dosage: 400 MG, QM
     Route: 030
     Dates: start: 20190515
  2. ABILIFY [Suspect]
     Active Substance: ARIPIPRAZOLE
     Indication: Schizophrenia
     Dosage: 4T, QD (AFTER BREAKFAST)
     Route: 065
     Dates: start: 20190415, end: 20190514
  3. HIBERNA [PROMETHAZINE HYDROCHLORIDE] [Concomitant]
     Indication: Product used for unknown indication
     Dosage: 3T, 3 X AFTER EACH MEAL
     Route: 065
     Dates: start: 20190415
  4. MOSAPRIDE CITRATE [Concomitant]
     Active Substance: MOSAPRIDE CITRATE
     Indication: Product used for unknown indication
     Dosage: 3T, 3 X AFTER EACH MEAL
     Route: 065
     Dates: start: 20190415
  5. TRIHEXYPHENIDYL HYDROCHLORIDE [Concomitant]
     Active Substance: TRIHEXYPHENIDYL HYDROCHLORIDE
     Indication: Product used for unknown indication
     Dosage: 5T (2, 1, 2),  3 X AFTER EACH MEAL
     Route: 065
     Dates: start: 20200325
  6. LORAZEPAM [Concomitant]
     Active Substance: LORAZEPAM
     Indication: Product used for unknown indication
     Dosage: 1 MG, QD (AFTER DINNER)
     Route: 065
     Dates: start: 20190415
  7. FLUNITRAZEPAM [Concomitant]
     Active Substance: FLUNITRAZEPAM
     Indication: Product used for unknown indication
     Dosage: 2T, 1 X BEFORE BEDTIME
     Route: 065
     Dates: start: 20190415
  8. CONTOMIN [CHLORPROMAZINE HYDROCHLORIDE] [Concomitant]
     Indication: Product used for unknown indication
     Dosage: 50 MG, QD (BEFORE BEDTIME)
     Route: 065
     Dates: start: 20190415, end: 20191224
  9. CONTOMIN [CHLORPROMAZINE HYDROCHLORIDE] [Concomitant]
     Dosage: 100 MG, QD (BEFORE BEDTIME)
     Route: 065
     Dates: start: 20191225, end: 20210912
  10. CONTOMIN [CHLORPROMAZINE HYDROCHLORIDE] [Concomitant]
     Dosage: 50 MG, QD (BEFORE BEDTIME)
     Route: 065
     Dates: start: 20210913
  11. LOXOPROFEN [Concomitant]
     Active Substance: LOXOPROFEN
     Indication: Pain
     Dosage: 1T (ALLOWED ORAL INTAKE UP TO 2 TIMES/DAY), 1 X AT THE TIME OF PAIN
     Route: 048
     Dates: start: 20190415, end: 20190709
  12. LOXOPROFEN [Concomitant]
     Active Substance: LOXOPROFEN
     Dosage: 1T (ALLOWED ORAL INTAKE UP TO 2 TIMES/DAY), 1 X AT THE TIME OF PAIN
     Route: 048
     Dates: start: 20190807
  13. BETAHISTINE MESILATE [Concomitant]
     Active Substance: BETAHISTINE MESILATE
     Indication: Product used for unknown indication
     Dosage: 6 MG, TID (AFTER EACH MEAL)
     Route: 065
     Dates: start: 20190515
  14. AMLODIPINE BESYLATE [Concomitant]
     Active Substance: AMLODIPINE BESYLATE
     Indication: Product used for unknown indication
     Dosage: 2.5 MG, QD (AFTER BREAKFAST)
     Route: 065
     Dates: start: 20190710
  15. FLUNITRAZEPAM [Concomitant]
     Active Substance: FLUNITRAZEPAM
     Indication: Product used for unknown indication
     Dosage: 2 MG, QD (BEFORE BEDTIME)
     Route: 065
     Dates: start: 20191127
  16. LOXOPROFEN SODIUM [Concomitant]
     Active Substance: LOXOPROFEN SODIUM
     Indication: Product used for unknown indication
     Dosage: 5 BAGS, UNK
     Route: 065
     Dates: start: 20210816

REACTIONS (1)
  - Cardiac death [Fatal]

NARRATIVE: CASE EVENT DATE: 20220105
